FAERS Safety Report 14094813 (Version 1)
Quarter: 2017Q4

REPORT INFORMATION
  Report Type: Spontaneous
  Country: US (occurrence: US)
  Receive Date: 20171016
  Receipt Date: 20171016
  Transmission Date: 20180321
  Serious: No
  Sender: FDA-Public Use
  Company Number: US-BAYER-2017-198557

PATIENT
  Sex: Female

DRUGS (1)
  1. CLIMARA [Suspect]
     Active Substance: ESTRADIOL
     Dosage: DAILY DOSE .025 MG
     Route: 062
     Dates: start: 20171011

REACTIONS (4)
  - Headache [None]
  - Wrong technique in device usage process [None]
  - Intentional underdose [None]
  - Drug ineffective [None]

NARRATIVE: CASE EVENT DATE: 20171011
